FAERS Safety Report 9918747 (Version 1)
Quarter: 2014Q1

REPORT INFORMATION
  Report Type: Spontaneous
  Country: JP (occurrence: JP)
  Receive Date: 20140224
  Receipt Date: 20140224
  Transmission Date: 20141002
  Serious: Yes (Hospitalization, Other)
  Sender: FDA-Public Use
  Company Number: JP-ELI_LILLY_AND_COMPANY-JP201402007247

PATIENT
  Age: 75 Year
  Sex: Female
  Weight: 55 kg

DRUGS (13)
  1. ADCIRCA [Suspect]
     Indication: PULMONARY HYPERTENSION
     Dosage: UNK
     Route: 048
     Dates: end: 20120716
  2. AMBRISENTAN [Suspect]
     Indication: PULMONARY HYPERTENSION
     Dosage: UNK
     Route: 048
     Dates: start: 20120628, end: 20120716
  3. TRYPTANOL [Suspect]
     Indication: PRODUCT USED FOR UNKNOWN INDICATION
     Dosage: UNK
     Route: 048
     Dates: end: 20120716
  4. WARFARIN [Concomitant]
     Dosage: UNK
     Dates: end: 20120616
  5. SELBEX [Concomitant]
     Dosage: UNK
     Dates: end: 20120716
  6. PHENOBAL [Concomitant]
     Dosage: UNK
     Dates: end: 20120716
  7. TAKEPRON [Concomitant]
     Dosage: UNK
     Dates: end: 20120716
  8. PREDNISOLONE [Concomitant]
     Dosage: UNK
     Dates: end: 20120716
  9. ALEVIATIN [Concomitant]
     Dosage: UNK
     Dates: end: 20120716
  10. EURODIN [Concomitant]
     Dosage: UNK
     Dates: end: 20120716
  11. BAKTAR [Concomitant]
     Dosage: UNK
     Dates: end: 20120716
  12. ADALAT [Concomitant]
     Dosage: UNK
     Dates: end: 20120716
  13. ALEVIATIN [Concomitant]
     Dosage: UNK

REACTIONS (4)
  - Acute respiratory distress syndrome [Unknown]
  - Malaise [Unknown]
  - Dyspnoea [Unknown]
  - Headache [Unknown]
